FAERS Safety Report 18695555 (Version 6)
Quarter: 2021Q4

REPORT INFORMATION
  Report Type: Spontaneous
  Country: US (occurrence: US)
  Receive Date: 20210104
  Receipt Date: 20211207
  Transmission Date: 20220304
  Serious: Yes (Hospitalization, Other)
  Sender: FDA-Public Use
  Company Number: US-PFIZER INC-2020513420

PATIENT
  Age: 65 Year
  Sex: Female

DRUGS (4)
  1. GENOTROPIN [Suspect]
     Active Substance: SOMATROPIN
     Dosage: 0.3 MG, DAILY
  2. GENOTROPIN [Suspect]
     Active Substance: SOMATROPIN
     Dosage: 0.4 MG, DAILY
     Dates: start: 202012
  3. GENOTROPIN [Suspect]
     Active Substance: SOMATROPIN
     Dosage: 0.3 MG/DAY, 7 DAYS/WEEK
  4. GENOTROPIN [Suspect]
     Active Substance: SOMATROPIN
     Dosage: 0.3 MG, DAILY

REACTIONS (13)
  - Pituitary tumour [Unknown]
  - Brain neoplasm [Unknown]
  - Meningitis [Unknown]
  - Cerebrovascular accident [Unknown]
  - Slow speech [Unknown]
  - Dyspnoea [Unknown]
  - Anxiety [Unknown]
  - Abdominal distension [Unknown]
  - Irritability [Unknown]
  - Insomnia [Unknown]
  - Fatigue [Unknown]
  - Pollakiuria [Unknown]
  - Headache [Unknown]
